FAERS Safety Report 4836549-7 (Version None)
Quarter: 2005Q4

REPORT INFORMATION
  Report Type: 
  Country: None (occurrence: None)
  Receive Date: 20051121
  Receipt Date: 20051107
  Transmission Date: 20060501
  Serious: Yes (Hospitalization)
  Sender: FDA-Public Use
  Company Number: 2005152608

PATIENT
  Age: 35 Year
  Sex: Male

DRUGS (4)
  1. AZITHROMYCIN [Suspect]
     Indication: ILL-DEFINED DISORDER
     Dosage: 500 MG (DAILY), ORAL
     Route: 048
     Dates: start: 20051101, end: 20051101
  2. LOXONIN (LOXOPROFEN SODIUM) [Concomitant]
  3. DASEN (SERRAPEPTASE) [Concomitant]
  4. MUCOSTA (REBAMIPIDE) [Concomitant]

REACTIONS (2)
  - TREMOR [None]
  - URTICARIA [None]
